FAERS Safety Report 5004457-7 (Version None)
Quarter: 2006Q2

REPORT INFORMATION
  Report Type: 
  Country: None (occurrence: None)
  Receive Date: 20060516
  Receipt Date: 20060516
  Transmission Date: 20061013
  Serious: Yes (Other)
  Sender: FDA-Public Use
  Company Number: None

PATIENT

DRUGS (1)
  1. AVASTIN [Suspect]
     Dosage: ONE-TIME DOSE  INTRAVITREAL
     Dates: start: 20060420

REACTIONS (1)
  - EYE PAIN [None]
